FAERS Safety Report 14254812 (Version 1)
Quarter: 2017Q4

REPORT INFORMATION
  Report Type: Spontaneous
  Country: JP (occurrence: JP)
  Receive Date: 20171206
  Receipt Date: 20171206
  Transmission Date: 20180321
  Serious: Yes (Hospitalization)
  Sender: FDA-Public Use
  Company Number: GXJP2017JP001812

PATIENT
  Age: 65 Year
  Sex: Male

DRUGS (10)
  1. ESANBUTOL TABLETS [Suspect]
     Active Substance: ETHAMBUTOL HYDROCHLORIDE
     Indication: MYCOBACTERIUM AVIUM COMPLEX INFECTION
  2. LEVOFLOXACIN. [Suspect]
     Active Substance: LEVOFLOXACIN
     Indication: SYNOVITIS
     Dosage: UNK
     Route: 065
  3. STREPTOMYCIN [Concomitant]
     Active Substance: STREPTOMYCIN\STREPTOMYCIN SULFATE
     Indication: SYNOVITIS
     Route: 065
  4. STREPTOMYCIN [Concomitant]
     Active Substance: STREPTOMYCIN\STREPTOMYCIN SULFATE
     Indication: MYCOBACTERIUM AVIUM COMPLEX INFECTION
  5. RIFAMPICIN CAPSULES [Suspect]
     Active Substance: RIFAMPIN
     Indication: MYCOBACTERIUM AVIUM COMPLEX INFECTION
  6. CLARITHROMYCIN. [Suspect]
     Active Substance: CLARITHROMYCIN
     Indication: SYNOVITIS
     Dosage: UNK
     Route: 065
  7. LEVOFLOXACIN. [Suspect]
     Active Substance: LEVOFLOXACIN
     Indication: MYCOBACTERIUM AVIUM COMPLEX INFECTION
  8. ESANBUTOL TABLETS [Suspect]
     Active Substance: ETHAMBUTOL HYDROCHLORIDE
     Indication: SYNOVITIS
     Dosage: UNK
     Route: 048
  9. RIFAMPICIN CAPSULES [Suspect]
     Active Substance: RIFAMPIN
     Indication: SYNOVITIS
     Dosage: UNK
     Route: 048
  10. CLARITHROMYCIN. [Suspect]
     Active Substance: CLARITHROMYCIN
     Indication: MYCOBACTERIUM AVIUM COMPLEX INFECTION

REACTIONS (3)
  - Swelling [Recovering/Resolving]
  - Condition aggravated [Recovering/Resolving]
  - Paradoxical drug reaction [Recovered/Resolved]
